FAERS Safety Report 7460403-8 (Version None)
Quarter: 2011Q2

REPORT INFORMATION
  Report Type: 
  Country: None (occurrence: None)
  Receive Date: 20110505
  Receipt Date: 20110428
  Transmission Date: 20111010
  Serious: Yes (Other)
  Sender: FDA-Public Use
  Company Number: A0926079A

PATIENT
  Sex: Male

DRUGS (2)
  1. LOVAZA [Suspect]
     Route: 048
  2. UNSPECIFIED MEDICATION [Concomitant]

REACTIONS (1)
  - MULTIPLE FRACTURES [None]
